FAERS Safety Report 5706172-0 (Version None)
Quarter: 2008Q2

REPORT INFORMATION
  Report Type: 
  Country: None (occurrence: None)
  Receive Date: 20080415
  Receipt Date: 20080403
  Transmission Date: 20081010
  Serious: Yes (Death, Hospitalization)
  Sender: FDA-Public Use
  Company Number: US-PFIZER INC-2008030114

PATIENT
  Sex: Female

DRUGS (11)
  1. NEURONTIN [Suspect]
  2. REGLAN [Concomitant]
  3. LORTAB [Concomitant]
  4. LEXAPRO [Concomitant]
  5. TRICOR [Concomitant]
  6. ACTOS [Concomitant]
  7. LANTUS [Concomitant]
  8. LOMOTIL [Concomitant]
  9. LOPERAMIDE HCL [Concomitant]
  10. ROZEREM [Concomitant]
  11. CYMBALTA [Concomitant]

REACTIONS (2)
  - DEATH [None]
  - RESPIRATORY ARREST [None]
